FAERS Safety Report 18075407 (Version 1)
Quarter: 2020Q3

REPORT INFORMATION
  Report Type: Spontaneous
  Country: US (occurrence: US)
  Receive Date: 20200727
  Receipt Date: 20200727
  Transmission Date: 20201103
  Serious: No
  Sender: FDA-Public Use
  Company Number: US-ABBVIE-20K-163-3233739-00

PATIENT
  Sex: Female
  Weight: 65.32 kg

DRUGS (2)
  1. SYNTHROID [Suspect]
     Active Substance: LEVOTHYROXINE SODIUM
     Route: 048
     Dates: start: 201912
  2. SYNTHROID [Suspect]
     Active Substance: LEVOTHYROXINE SODIUM
     Indication: PRODUCT USED FOR UNKNOWN INDICATION
     Dosage: 0.05 MG, ONCE IN THE MORNING
     Route: 048
     Dates: start: 2014, end: 201811

REACTIONS (11)
  - Nervousness [Not Recovered/Not Resolved]
  - Blood test abnormal [Unknown]
  - Blood thyroid stimulating hormone abnormal [Unknown]
  - Muscle spasms [Recovered/Resolved]
  - Muscle spasms [Not Recovered/Not Resolved]
  - Drug ineffective [Not Recovered/Not Resolved]
  - Thyroxine abnormal [Unknown]
  - General symptom [Unknown]
  - Antibody test positive [Unknown]
  - Irritability [Not Recovered/Not Resolved]
  - Drug ineffective [Unknown]

NARRATIVE: CASE EVENT DATE: 2018
